FAERS Safety Report 9133960 (Version 3)
Quarter: 2013Q1

REPORT INFORMATION
  Report Type: Spontaneous
  Country: US (occurrence: US)
  Receive Date: 20130304
  Receipt Date: 20130322
  Transmission Date: 20140127
  Serious: Yes (Death)
  Sender: FDA-Public Use
  Company Number: US-AMGEN-USASP2013014469

PATIENT
  Age: 77 Year
  Sex: Female

DRUGS (1)
  1. PROCRIT [Suspect]
     Indication: PRODUCT USED FOR UNKNOWN INDICATION
     Dosage: 40000 ML, UNK

REACTIONS (4)
  - Myelodysplastic syndrome [Fatal]
  - Sepsis [Fatal]
  - Diverticulum [Fatal]
  - Polymyalgia rheumatica [Fatal]
